FAERS Safety Report 15158692 (Version 1)
Quarter: 2018Q3

REPORT INFORMATION
  Report Type: Spontaneous
  Country: PL (occurrence: PL)
  Receive Date: 20180718
  Receipt Date: 20180718
  Transmission Date: 20181010
  Serious: Yes (Hospitalization, Other)
  Sender: FDA-Public Use
  Company Number: PL-APOTEX-2018AP017472

PATIENT
  Age: 57 Year
  Sex: Female
  Weight: 56 kg

DRUGS (9)
  1. KETOPROFEN. [Suspect]
     Active Substance: KETOPROFEN
     Indication: LIGAMENT SPRAIN
     Dosage: UNK
     Route: 048
  2. DEXKETOPROFEN [Suspect]
     Active Substance: DEXKETOPROFEN
     Indication: LIGAMENT SPRAIN
     Dosage: UNK
     Route: 048
  3. IBANDRONATE [Suspect]
     Active Substance: IBANDRONATE SODIUM
     Indication: OSTEOPOROSIS
     Dosage: 150 MG, Q.M.T.
     Route: 048
  4. DEXKETOPROFEN [Suspect]
     Active Substance: DEXKETOPROFEN
     Dosage: UNK
     Route: 030
  5. VITAMIN D3 [Concomitant]
     Active Substance: CHOLECALCIFEROL
     Indication: OSTEOPOROSIS
     Dosage: 1250 UNITS, DAILY
     Route: 048
  6. NAPROXEN. [Suspect]
     Active Substance: NAPROXEN
     Dosage: UNK
     Route: 030
  7. NAPROXEN. [Suspect]
     Active Substance: NAPROXEN
     Indication: LIGAMENT SPRAIN
     Dosage: UNK
     Route: 048
  8. KETOPROFEN. [Suspect]
     Active Substance: KETOPROFEN
     Dosage: UNK
     Route: 030
  9. VITAMIN D3 CALCIUM [Concomitant]
     Active Substance: CALCIUM\CHOLECALCIFEROL
     Indication: OSTEOPOROSIS
     Dosage: 1000 UNITS OF VIT D3 AND 500 MG CALCIUM, DAILY
     Route: 048

REACTIONS (3)
  - Pathological fracture [Recovering/Resolving]
  - Femoral neck fracture [Recovering/Resolving]
  - Drug ineffective [Unknown]
